FAERS Safety Report 15386496 (Version 3)
Quarter: 2018Q4

REPORT INFORMATION
  Report Type: Report from Study
  Country: PH (occurrence: PH)
  Receive Date: 20180914
  Receipt Date: 20181017
  Transmission Date: 20190204
  Serious: Yes (Death, Life-Threatening)
  Sender: FDA-Public Use
  Company Number: PH-PFIZER INC-2018366847

PATIENT
  Age: 68 Year
  Sex: Male
  Weight: 56 kg

DRUGS (7)
  1. IRINOTECAN HCL [Suspect]
     Active Substance: IRINOTECAN HYDROCHLORIDE
     Dosage: 480 MG, TOTAL DAILY DOSE, CYCLIC 2
     Route: 041
     Dates: start: 20180828
  2. DINUTUXIMAB [Suspect]
     Active Substance: DINUTUXIMAB
     Dosage: 26.88 MG, TOTAL DAILY DOSE, CYCLE 2
     Route: 041
     Dates: start: 20180828
  3. GLYXAMBI [Concomitant]
     Active Substance: EMPAGLIFLOZIN\LINAGLIPTIN
     Dosage: UNK
     Dates: start: 20180201
  4. TARGIN [Concomitant]
     Active Substance: NALOXONE HYDROCHLORIDE\OXYCODONE HYDROCHLORIDE
     Dosage: UNK
     Dates: start: 20180201
  5. IRINOTECAN HCL [Suspect]
     Active Substance: IRINOTECAN HYDROCHLORIDE
     Indication: SMALL CELL LUNG CANCER
     Dosage: UNK UNK, CYCLIC 1
     Route: 041
     Dates: start: 20180806
  6. DINUTUXIMAB [Suspect]
     Active Substance: DINUTUXIMAB
     Indication: SMALL CELL LUNG CANCER
     Dosage: UNK UNK, CYCLIC 1
     Route: 041
     Dates: start: 20180806
  7. LANTUS [Concomitant]
     Active Substance: INSULIN GLARGINE
     Dosage: UNK
     Dates: start: 20180201

REACTIONS (1)
  - Sepsis [Fatal]

NARRATIVE: CASE EVENT DATE: 20180904
